FAERS Safety Report 4826354-X (Version None)
Quarter: 2005Q4

REPORT INFORMATION
  Report Type: 
  Country: None (occurrence: None)
  Receive Date: 20051109
  Receipt Date: 20051026
  Transmission Date: 20060501
  Serious: Yes (Other)
  Sender: FDA-Public Use
  Company Number: S05-USA-03295-01

PATIENT
  Age: 42 Year
  Sex: Male

DRUGS (7)
  1. LEXAPRO [Suspect]
     Indication: OBSESSIVE-COMPULSIVE DISORDER
     Dosage: 30 MG QD PO
     Route: 048
     Dates: start: 20030401, end: 20050301
  2. LEXAPRO [Suspect]
     Indication: OBSESSIVE-COMPULSIVE DISORDER
     Dosage: 15 MG QD PO
     Route: 048
     Dates: start: 20050301, end: 20050101
  3. LEXAPRO [Suspect]
     Indication: OBSESSIVE-COMPULSIVE DISORDER
     Dosage: 10 MG QD PO
     Route: 048
     Dates: start: 20050101
  4. CLOZAPINE [Suspect]
     Indication: OBSESSIVE THOUGHTS
     Dosage: 300 MG QD PO
     Route: 048
     Dates: start: 20030401, end: 20050301
  5. CLOZAPINE [Suspect]
     Indication: OBSESSIVE THOUGHTS
     Dosage: 150 MG QD PO
     Route: 048
     Dates: start: 20050301, end: 20050709
  6. CLOZAPINE [Suspect]
     Indication: OBSESSIVE THOUGHTS
     Dosage: 100 MG QD PO
     Route: 048
     Dates: start: 20050710
  7. LORAZEPAM [Concomitant]

REACTIONS (2)
  - CONDITION AGGRAVATED [None]
  - TARDIVE DYSKINESIA [None]
